FAERS Safety Report 9915914 (Version 1)
Quarter: 2014Q1

REPORT INFORMATION
  Report Type: Spontaneous
  Country: US (occurrence: None)
  Receive Date: 20140219
  Receipt Date: 20140219
  Transmission Date: 20141002
  Serious: Yes (Disabling)
  Sender: FDA-Public Use
  Company Number: None

PATIENT
  Age: 37 Year
  Sex: Male
  Weight: 62.14 kg

DRUGS (1)
  1. HUMIRA [Suspect]
     Indication: CROHN^S DISEASE
     Dosage: ONE SYRINGE PEN EVERY 2 WEEKS  GIVEN INTO/UNDER THE SKIN
     Dates: start: 20130401, end: 20130701

REACTIONS (3)
  - Anaemia [None]
  - Pancytopenia [None]
  - Pyrexia [None]
